FAERS Safety Report 18821240 (Version 1)
Quarter: 2021Q1

REPORT INFORMATION
  Report Type: Spontaneous
  Country: US (occurrence: US)
  Receive Date: 20210202
  Receipt Date: 20210202
  Transmission Date: 20210419
  Serious: Yes (Other)
  Sender: FDA-Public Use
  Company Number: US-GLAXOSMITHKLINE-US2021GSK025136

PATIENT
  Sex: Female

DRUGS (4)
  1. ZANTAC [Suspect]
     Active Substance: RANITIDINE HYDROCHLORIDE
     Indication: ASTHMA
     Dosage: UNK UNK, QD
     Route: 065
     Dates: start: 199006, end: 201712
  2. RANITIDINE. [Suspect]
     Active Substance: RANITIDINE
     Indication: ASTHMA
     Dosage: UNK, QD
     Route: 065
     Dates: start: 199006, end: 201712
  3. ZANTAC [Suspect]
     Active Substance: RANITIDINE HYDROCHLORIDE
     Indication: ASTHMA
     Dosage: UNK UNK, QD
     Route: 065
     Dates: start: 199006, end: 201712
  4. RANITIDINE. [Suspect]
     Active Substance: RANITIDINE
     Indication: ASTHMA
     Dosage: UNK, QD
     Route: 065
     Dates: start: 199006, end: 201712

REACTIONS (1)
  - Colorectal cancer [Unknown]
